FAERS Safety Report 5828604-X (Version None)
Quarter: 2008Q3

REPORT INFORMATION
  Report Type: 
  Country: None (occurrence: None)
  Receive Date: 20080731
  Receipt Date: 20080724
  Transmission Date: 20090109
  Serious: Yes (Hospitalization, Congenital Anomaly)
  Sender: FDA-Public Use
  Company Number: A0680192A

PATIENT
  Sex: Male

DRUGS (2)
  1. PAXIL [Suspect]
     Indication: DEPRESSION
     Dosage: 20MG PER DAY
     Dates: start: 19940401, end: 19980401
  2. VITAMIN TAB [Concomitant]

REACTIONS (11)
  - ATRIAL SEPTAL DEFECT [None]
  - CONGENITAL AORTIC ANOMALY [None]
  - DRUG EXPOSURE DURING PREGNANCY [None]
  - FALLOT'S TETRALOGY [None]
  - HEPATIC ENZYME INCREASED [None]
  - NODAL ARRHYTHMIA [None]
  - PERSISTENT FOETAL CIRCULATION [None]
  - PULMONARY VALVE STENOSIS [None]
  - RESPIRATORY FAILURE [None]
  - RIGHT VENTRICULAR HYPERTROPHY [None]
  - VENTRICULAR SEPTAL DEFECT [None]
